FAERS Safety Report 6898592-6 (Version None)
Quarter: 2010Q3

REPORT INFORMATION
  Report Type: 
  Country: None (occurrence: None)
  Receive Date: 20100729
  Receipt Date: 20100723
  Transmission Date: 20110219
  Serious: No
  Sender: FDA-Public Use
  Company Number: RB-05886-2010

PATIENT
  Age: 30 Year
  Sex: Male

DRUGS (2)
  1. SUBOXONE [Suspect]
     Indication: DRUG DEPENDENCE
     Dosage: (8 MG QD SUBLINGUAL)
     Route: 060
     Dates: start: 20090101, end: 20090101
  2. SUBUTEX [Suspect]
     Indication: DRUG DEPENDENCE
     Dosage: (DOSES BEING TAPERED TO 2 MG UNKNOWN)
     Dates: start: 20090101

REACTIONS (6)
  - CONVULSION [None]
  - DIARRHOEA [None]
  - HYPERHIDROSIS [None]
  - TREMOR [None]
  - VOMITING [None]
  - WITHDRAWAL SYNDROME [None]
